FAERS Safety Report 23790255 (Version 1)
Quarter: 2024Q2

REPORT INFORMATION
  Report Type: Spontaneous
  Country: US (occurrence: None)
  Receive Date: 20240426
  Receipt Date: 20240426
  Transmission Date: 20240716
  Serious: Yes (Other)
  Sender: FDA-Public Use
  Company Number: US-ROCHE-3552365

PATIENT
  Age: 73 Year
  Sex: Female
  Weight: 69.008 kg

DRUGS (1)
  1. AVASTIN [Suspect]
     Active Substance: BEVACIZUMAB
     Indication: Neovascular age-related macular degeneration
     Dosage: 3 SHOTS THAT WERE 4 WEEKS BETWEEN DOSES AND THAT THE DOSE BEFORE THAT WAS 5 WEEKS IN BETWEEN
     Route: 050
     Dates: start: 202305

REACTIONS (2)
  - Off label use [Unknown]
  - Cataract [Recovered/Resolved]

NARRATIVE: CASE EVENT DATE: 20230501
